FAERS Safety Report 6783728-8 (Version None)
Quarter: 2010Q2

REPORT INFORMATION
  Report Type: 
  Country: None (occurrence: None)
  Receive Date: 20100622
  Receipt Date: 20100618
  Transmission Date: 20101027
  Serious: Yes (Hospitalization)
  Sender: FDA-Public Use
  Company Number: CO-ROCHE-710060

PATIENT
  Sex: Female

DRUGS (2)
  1. CELLCEPT [Suspect]
     Dosage: FREQUENCY:QD
     Route: 048
     Dates: start: 20100124, end: 20100401
  2. PREDNISOLONE [Concomitant]
     Dosage: FREQUENCY:QD
     Route: 048

REACTIONS (2)
  - TRANSPLANT REJECTION [None]
  - URINARY TRACT INFECTION [None]
